FAERS Safety Report 21558174 (Version 2)
Quarter: 2023Q2

REPORT INFORMATION
  Report Type: Other
  Country: US (occurrence: None)
  Receive Date: 20221107
  Receipt Date: 20230417
  Transmission Date: 20230722
  Serious: No
  Sender: FDA-Public Use
  Company Number: US-ROCHE-3213201

PATIENT
  Age: 71 Year
  Sex: Female

DRUGS (1)
  1. OCREVUS [Suspect]
     Active Substance: OCRELIZUMAB
     Indication: Relapsing multiple sclerosis
     Dosage: INFUSE 600MG EVERY 6 MONTHS?DATE OF TREATMENT: 13/APR/2023
     Route: 042
     Dates: start: 20180109

REACTIONS (2)
  - COVID-19 [Recovering/Resolving]
  - Illness [Unknown]
